FAERS Safety Report 6174211-1 (Version None)
Quarter: 2009Q2

REPORT INFORMATION
  Report Type: 
  Country: None (occurrence: None)
  Receive Date: 20090430
  Receipt Date: 20080602
  Transmission Date: 20091009
  Serious: No
  Sender: FDA-Public Use
  Company Number: US-ASTRAZENECA-2008UW06073

PATIENT
  Age: 90 Year
  Sex: Male

DRUGS (5)
  1. NEXIUM [Suspect]
     Indication: GASTROINTESTINAL DISORDER
     Route: 048
  2. PLAVIX [Concomitant]
  3. BUMETANIDE [Concomitant]
  4. ISORBIDE [Concomitant]
  5. ALTACE [Concomitant]

REACTIONS (2)
  - FLUID RETENTION [None]
  - ILL-DEFINED DISORDER [None]
